FAERS Safety Report 9852171 (Version 2)
Quarter: 2014Q1

REPORT INFORMATION
  Report Type: Spontaneous
  Country: US (occurrence: US)
  Receive Date: 20140129
  Receipt Date: 20140129
  Transmission Date: 20141002
  Serious: Yes (Other)
  Sender: FDA-Public Use
  Company Number: US-BRACCO-009252

PATIENT
  Age: 53 Year
  Sex: Female
  Weight: 89 kg

DRUGS (3)
  1. MULTIHANCE [Suspect]
     Indication: ANGIOGRAM
     Dosage: CONTRAST GIVEN AT 1450
     Route: 042
     Dates: start: 20130306, end: 20130306
  2. MAGNESIUM SULFATE [Concomitant]
     Dosage: GIVEN AT 1215
     Dates: start: 20130306, end: 20130306
  3. SODIUM CHLORIDE [Concomitant]
     Dosage: GIVEN AT 0427
     Route: 042
     Dates: start: 20130306, end: 20130306

REACTIONS (1)
  - Anaphylactic reaction [Recovered/Resolved]
